FAERS Safety Report 10481846 (Version 2)
Quarter: 2014Q4

REPORT INFORMATION
  Report Type: Report from Study
  Country: BR (occurrence: BR)
  Receive Date: 20140929
  Receipt Date: 20141008
  Transmission Date: 20150528
  Serious: Yes (Hospitalization, Other)
  Sender: FDA-Public Use
  Company Number: BR-SA-2014SA127908

PATIENT
  Sex: Female

DRUGS (1)
  1. MYOZYME [Suspect]
     Active Substance: ALGLUCOSIDASE ALFA
     Indication: GLYCOGEN STORAGE DISEASE TYPE II
     Route: 041
     Dates: start: 20140328, end: 20140805

REACTIONS (10)
  - Drug dose omission [Unknown]
  - Palpitations [Unknown]
  - Asthenia [Unknown]
  - Dyspnoea [Unknown]
  - Fall [Unknown]
  - Headache [Unknown]
  - Fractured coccyx [Unknown]
  - Memory impairment [Unknown]
  - Heart rate increased [Unknown]
  - Fracture pain [Unknown]

NARRATIVE: CASE EVENT DATE: 2014
